FAERS Safety Report 9564049 (Version 2)
Quarter: 2013Q4

REPORT INFORMATION
  Report Type: Spontaneous
  Country: US (occurrence: US)
  Receive Date: 20130928
  Receipt Date: 20131111
  Transmission Date: 20140711
  Serious: No
  Sender: FDA-Public Use
  Company Number: US-009507513-1309USA013047

PATIENT
  Sex: Female
  Weight: 74.83 kg

DRUGS (3)
  1. CLARITIN [Suspect]
     Indication: RHINORRHOEA
     Dosage: 10 MG, QD
     Route: 048
     Dates: start: 20130901, end: 20130905
  2. CLARITIN [Suspect]
     Indication: THROAT IRRITATION
  3. CLARITIN [Suspect]
     Indication: PARANASAL SINUS HYPERSECRETION

REACTIONS (1)
  - Drug ineffective [Unknown]
